FAERS Safety Report 5204394-9 (Version None)
Quarter: 2007Q1

REPORT INFORMATION
  Report Type: 
  Country: None (occurrence: None)
  Receive Date: 20070110
  Receipt Date: 20060315
  Transmission Date: 20070707
  Serious: Yes (Other)
  Sender: FDA-Public Use
  Company Number: US-BRISTOL-MYERS SQUIBB COMPANY-13316047

PATIENT
  Age: 61 Year
  Sex: Male
  Weight: 190 kg

DRUGS (5)
  1. ABILIFY [Suspect]
     Indication: SCHIZOAFFECTIVE DISORDER
     Route: 048
     Dates: start: 20060116, end: 20060311
  2. DEPAKOTE [Concomitant]
     Route: 048
  3. AUGMENTIN '125' [Concomitant]
     Indication: INFECTION
     Route: 048
  4. ALBUTEROL [Concomitant]
     Route: 055
  5. OXYGEN [Concomitant]
     Indication: SLEEP APNOEA SYNDROME

REACTIONS (3)
  - ASTHENIA [None]
  - HUNGER [None]
  - SUICIDAL IDEATION [None]
